FAERS Safety Report 12703431 (Version 3)
Quarter: 2016Q4

REPORT INFORMATION
  Report Type: Report from Study
  Country: BR (occurrence: BR)
  Receive Date: 20160831
  Receipt Date: 20161014
  Transmission Date: 20170207
  Serious: Yes (Other)
  Sender: FDA-Public Use
  Company Number: BR-JNJFOC-20160823649

PATIENT
  Sex: Female
  Weight: 60 kg

DRUGS (2)
  1. CALCIUM [Concomitant]
     Active Substance: CALCIUM
     Route: 065
  2. SIMPONI [Suspect]
     Active Substance: GOLIMUMAB
     Indication: RHEUMATOID ARTHRITIS
     Route: 058
     Dates: start: 20140606

REACTIONS (2)
  - Drug ineffective [Unknown]
  - Joint stiffness [Unknown]
